FAERS Safety Report 24141080 (Version 4)
Quarter: 2024Q3

REPORT INFORMATION
  Report Type: Spontaneous
  Country: US (occurrence: US)
  Receive Date: 20240726
  Receipt Date: 20240918
  Transmission Date: 20241016
  Serious: No
  Sender: SANOFI AVENTIS
  Company Number: US-SA-SAC20240723000508

PATIENT
  Age: 59 Year
  Sex: Male
  Weight: 142 kg

DRUGS (45)
  1. KEVZARA [Suspect]
     Active Substance: SARILUMAB
     Indication: Polymyalgia rheumatica
     Dosage: 200 MG, QOW
     Route: 058
     Dates: start: 20240709, end: 2024
  2. VOLTAREN ARTHRITIS PAIN [Concomitant]
     Active Substance: DICLOFENAC SODIUM
  3. MUCINEX [Concomitant]
     Active Substance: GUAIFENESIN
  4. MUCINEX [Concomitant]
     Active Substance: GUAIFENESIN
  5. OXYCODONE HYDROCHLORIDE [Concomitant]
     Active Substance: OXYCODONE HYDROCHLORIDE
  6. METHOTREXATE [Concomitant]
     Active Substance: METHOTREXATE
  7. METHOTREXATE [Concomitant]
     Active Substance: METHOTREXATE
     Dosage: 10MG
  8. ALBUTEROL SULFATE [Concomitant]
     Active Substance: ALBUTEROL SULFATE
  9. FLONASE ALLERGY RELIEF [Concomitant]
     Active Substance: FLUTICASONE PROPIONATE
  10. ATOVAQUONE [Concomitant]
     Active Substance: ATOVAQUONE
     Route: 048
  11. ATOVAQUONE [Concomitant]
     Active Substance: ATOVAQUONE
  12. GABAPENTIN [Concomitant]
     Active Substance: GABAPENTIN
  13. MELATONIN [Concomitant]
     Active Substance: MELATONIN
     Dosage: UNK
  14. MELATONIN [Concomitant]
     Active Substance: MELATONIN
     Dosage: 100MG
  15. COLACE [Concomitant]
     Active Substance: DOCUSATE SODIUM
     Dosage: UNK
  16. COLACE [Concomitant]
     Active Substance: DOCUSATE SODIUM
     Dosage: 50MG
  17. MYRBETRIQ [Concomitant]
     Active Substance: MIRABEGRON
     Dosage: UNK
  18. MYRBETRIQ [Concomitant]
     Active Substance: MIRABEGRON
     Dosage: 100MG
  19. PANTOPRAZOLE SODIUM [Concomitant]
     Active Substance: PANTOPRAZOLE SODIUM
     Dosage: UNK
  20. PANTOPRAZOLE SODIUM [Concomitant]
     Active Substance: PANTOPRAZOLE SODIUM
     Dosage: 50MG
  21. DEXAMETHASONE [Concomitant]
     Active Substance: DEXAMETHASONE
     Dosage: 10 MG
  22. DEXAMETHASONE [Concomitant]
     Active Substance: DEXAMETHASONE
     Dosage: 10MG
  23. TRAZODONE [Concomitant]
     Active Substance: TRAZODONE HYDROCHLORIDE
     Dosage: 100 MG
  24. TRAZODONE [Concomitant]
     Active Substance: TRAZODONE HYDROCHLORIDE
     Dosage: 100MG
  25. DULOXETINE HYDROCHLORIDE [Concomitant]
     Active Substance: DULOXETINE HYDROCHLORIDE
     Dosage: 100 MG
  26. DULOXETINE HYDROCHLORIDE [Concomitant]
     Active Substance: DULOXETINE HYDROCHLORIDE
     Dosage: 100MG
  27. AMLODIPINE BESYLATE [Concomitant]
     Active Substance: AMLODIPINE BESYLATE
     Dosage: 4 MG
  28. LEUCOVORIN CALCIUM [Concomitant]
     Active Substance: LEUCOVORIN CALCIUM
     Dosage: 300 MG
  29. LEUCOVORIN CALCIUM [Concomitant]
     Active Substance: LEUCOVORIN CALCIUM
     Dosage: 300MG
  30. ALLOPURINOL [Concomitant]
     Active Substance: ALLOPURINOL
     Dosage: 300MG
  31. ALLOPURINOL [Concomitant]
     Active Substance: ALLOPURINOL
     Dosage: 5MG
  32. OXYBUTYNIN CHLORIDE [Concomitant]
     Active Substance: OXYBUTYNIN CHLORIDE
     Dosage: 300MG
  33. OXYBUTYNIN CHLORIDE [Concomitant]
     Active Substance: OXYBUTYNIN CHLORIDE
     Dosage: 300MG
  34. TELMISARTAN [Concomitant]
     Active Substance: TELMISARTAN
     Dosage: 325MG
  35. TELMISARTAN [Concomitant]
     Active Substance: TELMISARTAN
     Dosage: 325MG
  36. GLUCOSAMINE [Concomitant]
     Active Substance: GLUCOSAMINE
     Dosage: 325MG
  37. GLUCOSAMINE [Concomitant]
     Active Substance: GLUCOSAMINE
     Dosage: 325MG
  38. TYLENOL [Concomitant]
     Active Substance: ACETAMINOPHEN
     Dosage: 5MG
  39. TYLENOL [Concomitant]
     Active Substance: ACETAMINOPHEN
     Dosage: 5MG
  40. METHOCARBAMOL [Concomitant]
     Active Substance: METHOCARBAMOL
     Dosage: 750 MG
  41. ZYRTEC [Concomitant]
     Active Substance: CETIRIZINE HYDROCHLORIDE
     Dosage: 2 MG
  42. TAMSULOSIN HYDROCHLORIDE [Concomitant]
     Active Substance: TAMSULOSIN HYDROCHLORIDE
     Dosage: 20 MG
  43. TRAZODONE HCL [Concomitant]
     Active Substance: TRAZODONE HYDROCHLORIDE
  44. TELMISARTAN AND HYDROCHLOROTHIAZIDE [Concomitant]
     Active Substance: HYDROCHLOROTHIAZIDE\TELMISARTAN
  45. SODIUM CHLORIDE [Concomitant]
     Active Substance: SODIUM CHLORIDE
     Dosage: UNK

REACTIONS (6)
  - Diarrhoea [Unknown]
  - Peripheral swelling [Unknown]
  - Tinnitus [Unknown]
  - Swelling [Unknown]
  - Hypersomnia [Unknown]
  - Cortisol decreased [Unknown]

NARRATIVE: CASE EVENT DATE: 20240101
